FAERS Safety Report 4913823-7 (Version None)
Quarter: 2006Q1

REPORT INFORMATION
  Report Type: 
  Country: None (occurrence: None)
  Receive Date: 20060216
  Receipt Date: 20060207
  Transmission Date: 20060701
  Serious: Yes (Death)
  Sender: FDA-Public Use
  Company Number: ES-BRISTOL-MYERS SQUIBB COMPANY-13276431

PATIENT
  Age: 6 Decade
  Sex: Male

DRUGS (6)
  1. ABILIFY [Suspect]
     Indication: SCHIZOPHRENIA
     Dates: start: 20051003, end: 20051013
  2. ABILIFY [Suspect]
     Indication: DEPRESSION
     Dates: start: 20051003, end: 20051013
  3. ROHIPNOL [Suspect]
  4. THIORIDAZINE HCL [Concomitant]
     Dates: start: 19800101, end: 20050101
  5. MAJEPTIL [Concomitant]
     Dates: start: 19800101, end: 20051003
  6. AKINETON [Concomitant]
     Dates: start: 19800101, end: 20051003

REACTIONS (3)
  - COMPLETED SUICIDE [None]
  - FALL [None]
  - THERAPY NON-RESPONDER [None]
